FAERS Safety Report 14560182 (Version 2)
Quarter: 2018Q3

REPORT INFORMATION
  Report Type: Report from Study
  Country: CZ (occurrence: CZ)
  Receive Date: 20180222
  Receipt Date: 20180829
  Transmission Date: 20181010
  Serious: Yes (Hospitalization)
  Sender: FDA-Public Use
  Company Number: CZ-ROCHE-2035400

PATIENT
  Age: 73 Year
  Sex: Male
  Weight: 67 kg

DRUGS (6)
  1. RITUXIMAB. [Suspect]
     Active Substance: RITUXIMAB
     Indication: B-CELL LYMPHOMA REFRACTORY
     Dosage: ON DAY 1 OF EACH CYCLE FOR UP TO 6 CYCLES (AS PER PROTOCOL)?DOSE OF LAST RITUXIMAB ADMINISTERED 645
     Route: 042
     Dates: start: 20160531
  2. IFIRMACOMBI [Concomitant]
     Indication: HYPERTENSION
     Dosage: 300/12.5MG
     Route: 065
     Dates: start: 201111
  3. BENDAMUSTINE [Suspect]
     Active Substance: BENDAMUSTINE
     Indication: B-CELL LYMPHOMA REFRACTORY
     Dosage: PER DAY ADMINISTERED IV ON DAYS 2 AND 3 OF CYCLE 1, THEN ON DAYS 1 AND 2 OF EACH SUBSEQUENT CYCLE FO
     Route: 042
     Dates: start: 20160601
  4. ALLOPURINOL. [Concomitant]
     Active Substance: ALLOPURINOL
     Indication: HYPERURICAEMIA
     Route: 065
     Dates: start: 2009
  5. SALOFALK [Concomitant]
     Active Substance: MESALAMINE
     Indication: COLITIS ULCERATIVE
     Route: 065
     Dates: start: 201603, end: 20171122
  6. NOLPAZA [Concomitant]
     Active Substance: PANTOPRAZOLE SODIUM
     Indication: COLITIS ULCERATIVE
     Route: 065
     Dates: start: 20160817

REACTIONS (1)
  - Intestinal adenocarcinoma [Recovered/Resolved]

NARRATIVE: CASE EVENT DATE: 20170818
